FAERS Safety Report 8774633 (Version 11)
Quarter: 2017Q1

REPORT INFORMATION
  Report Type: Spontaneous
  Country: US (occurrence: US)
  Receive Date: 20120907
  Receipt Date: 20170111
  Transmission Date: 20170429
  Serious: Yes (Hospitalization, Other)
  Sender: FDA-Public Use
  Company Number: US-AMGEN-USASP2012055454

PATIENT
  Age: 49 Year
  Sex: Female
  Weight: 72.56 kg

DRUGS (96)
  1. CELEBREX [Concomitant]
     Active Substance: CELECOXIB
     Dosage: TAKE ONE (1) CAPSULE DAILY
  2. METAMUCIL [Concomitant]
     Active Substance: PLANTAGO SEED
     Indication: SUPPLEMENTATION THERAPY
     Dosage: 0.52 G, 3-4 CAPSULES PER DAY
  3. METAMUCIL [Concomitant]
     Active Substance: PLANTAGO SEED
     Dosage: 4 DF, QD
     Route: 048
     Dates: start: 2005
  4. FOLIC ACID. [Concomitant]
     Active Substance: FOLIC ACID
     Indication: SUPPLEMENTATION THERAPY
     Dosage: 0.4 MG, 1 TABLET TWICE EVERY DAY
     Route: 048
  5. CALCIFEROL [Concomitant]
     Active Substance: ERGOCALCIFEROL
     Indication: SUPPLEMENTATION THERAPY
     Dosage: 50000 IU, QWK
     Route: 048
     Dates: start: 201008
  6. ACIDOPHILUS [Concomitant]
     Active Substance: LACTOBACILLUS ACIDOPHILUS
     Indication: SUPPLEMENTATION THERAPY
     Dosage: 1 TAB, DAILY
     Route: 048
     Dates: start: 2009
  7. LECITHIN [Concomitant]
     Active Substance: LECITHIN
     Indication: SUPPLEMENTATION THERAPY
     Dosage: 1 TAB, DAILY
     Route: 048
     Dates: start: 2009
  8. VICODIN [Concomitant]
     Active Substance: ACETAMINOPHEN\HYDROCODONE BITARTRATE
     Dosage: 500 MG, AS NECESSARY
  9. CEPACOL ES [Concomitant]
     Dosage: 1 DF, QD
     Route: 048
  10. METHOTREXATE. [Suspect]
     Active Substance: METHOTREXATE
     Dosage: 7.5 MG, QWK
     Route: 065
     Dates: start: 2003
  11. METHOTREXATE. [Suspect]
     Active Substance: METHOTREXATE
     Dosage: 5 MG, UNK
     Route: 065
     Dates: start: 20080828
  12. CYCLOBENZAPRINE HCL [Concomitant]
     Active Substance: CYCLOBENZAPRINE HYDROCHLORIDE
     Indication: BACK PAIN
     Dosage: TAKE ONE (1) TABLET PRN
  13. MINOCIN [Concomitant]
     Active Substance: MINOCYCLINE HYDROCHLORIDE
     Dosage: ONE TABLET DAILY
  14. OMEPRAZOLE. [Concomitant]
     Active Substance: OMEPRAZOLE
     Dosage: 20 MG, EVERY DAY BEFORE A MEAL
     Route: 048
     Dates: start: 20130629
  15. PREDNISONE. [Concomitant]
     Active Substance: PREDNISONE
     Dosage: 2.5 MG, QD
     Route: 048
  16. S-ADENOSYLMETHIONINE SULFATE P-TOLUENESULFONATE [Concomitant]
     Active Substance: ADEMETIONINE SULFATE TOSILATE
     Indication: SUPPLEMENTATION THERAPY
     Dosage: 400 MG, QD
     Route: 048
     Dates: start: 2009
  17. SOLU-MEDROL [Concomitant]
     Active Substance: METHYLPREDNISOLONE SODIUM SUCCINATE
     Dosage: 125 MG, UNK
     Route: 030
  18. DAPTOMYCIN. [Concomitant]
     Active Substance: DAPTOMYCIN
     Dosage: MG/KG EVERY 24 HOURS X 7 DAYS
     Route: 042
     Dates: start: 20101221
  19. MOBIC [Concomitant]
     Active Substance: MELOXICAM
     Dosage: UNK
  20. HEPARIN [Concomitant]
     Active Substance: HEPARIN SODIUM
     Dosage: 5000 UNITS PER ML , Q8H
     Route: 058
  21. DARVOCET-N 100 [Concomitant]
     Active Substance: ACETAMINOPHEN\PROPOXYPHENE NAPSYLATE
  22. OMEGA 3-6-9 [Concomitant]
     Active Substance: FISH OIL
     Indication: SUPPLEMENTATION THERAPY
     Dosage: UNK
     Dates: start: 2009
  23. TOBRAMYCIN. [Concomitant]
     Active Substance: TOBRAMYCIN
     Dosage: 0.3 %, UNK
  24. LICORICE. [Concomitant]
     Active Substance: LICORICE
     Indication: GASTROOESOPHAGEAL REFLUX DISEASE
     Dosage: 1 TAB 4X DAILY
     Route: 048
     Dates: start: 201010
  25. BOSWELLIA [Concomitant]
     Indication: SUPPLEMENTATION THERAPY
     Dosage: 1 TAB, DAILY
     Route: 048
     Dates: start: 2009
  26. FLAGYL [Concomitant]
     Active Substance: METRONIDAZOLE\METRONIDAZOLE HYDROCHLORIDE
     Dosage: 3X A DAY
  27. ANCEF [Concomitant]
     Active Substance: CEFAZOLIN SODIUM
     Dosage: 2 G, UNK
     Route: 042
  28. FERROUS SULFATE. [Concomitant]
     Active Substance: FERROUS SULFATE
     Dosage: 325 MG, QD
     Route: 048
  29. MELATONIN [Concomitant]
     Active Substance: MELATONIN
     Indication: INSOMNIA
     Dosage: 1 MG, 1 TAB (HS)
     Route: 048
  30. SULFAMETHOXAZOLE\TRIMETHOPRIM [Concomitant]
     Active Substance: SULFAMETHOXAZOLE\TRIMETHOPRIM
     Dosage: 1 DF, BID
     Route: 048
  31. ENBREL [Suspect]
     Active Substance: ETANERCEPT
     Indication: RHEUMATOID ARTHRITIS
     Dosage: 25 MG, 2 TIMES/WK
     Route: 058
     Dates: start: 2002
  32. MINOCIN [Concomitant]
     Active Substance: MINOCYCLINE HYDROCHLORIDE
     Dosage: 100 MG, QD
     Route: 048
     Dates: start: 20130629
  33. PREDNISONE. [Concomitant]
     Active Substance: PREDNISONE
     Dosage: ONE TABLET BY ORAL ROUTE EVERY OTHER DAY
     Dates: start: 20130629
  34. ZYRTEC [Concomitant]
     Active Substance: CETIRIZINE HYDROCHLORIDE
     Dosage: UNK
  35. FOSAMAX [Concomitant]
     Active Substance: ALENDRONATE SODIUM
     Dosage: 70 MG, QWK
     Route: 048
     Dates: start: 2007
  36. IRON [Concomitant]
     Active Substance: IRON
     Dosage: 27 MG, QD
  37. FOLIC ACID. [Concomitant]
     Active Substance: FOLIC ACID
     Dosage: 800 MUG, QD
     Route: 048
     Dates: start: 2009
  38. TORADOL [Concomitant]
     Active Substance: KETOROLAC TROMETHAMINE
     Dosage: 30 MG, UNK
     Route: 030
  39. TREXALL [Concomitant]
     Active Substance: METHOTREXATE SODIUM
     Dosage: 7.5 MG, QWK
     Route: 048
  40. PROPOXYPHENE AND ACETAMINOPHEN [Concomitant]
     Active Substance: ACETAMINOPHEN\PROPOXYPHENE NAPSYLATE
     Dosage: 100 - 500 MG
  41. COENZYM Q10 [Concomitant]
     Indication: SUPPLEMENTATION THERAPY
     Dosage: UNK
  42. PRILOSEC [Concomitant]
     Active Substance: OMEPRAZOLE MAGNESIUM
     Dosage: 20 MG, TABLET QD
     Route: 048
  43. PSEUDOEPHEDRINE HCL [Concomitant]
     Active Substance: PSEUDOEPHEDRINE HYDROCHLORIDE
     Dosage: PRN
  44. ASTAXANTHIN [Concomitant]
     Indication: SUPPLEMENTATION THERAPY
     Dosage: 1 DF, QD
     Route: 048
     Dates: start: 201010
  45. CALCIUM/VITAMIN D [Concomitant]
     Active Substance: CALCIUM\VITAMIN D
     Dosage: UNK UNK, BID
     Route: 048
  46. CELEBREX [Concomitant]
     Active Substance: CELECOXIB
     Dosage: TAKE ONE (1) TABLET DAILY
     Route: 048
  47. CYCLOBENZAPRINE HCL [Concomitant]
     Active Substance: CYCLOBENZAPRINE HYDROCHLORIDE
     Indication: MUSCLE SPASMS
     Dosage: 10 MG, (1 HS AS NECESSARY)
     Route: 048
     Dates: start: 20130629
  48. OMEPRAZOLE. [Concomitant]
     Active Substance: OMEPRAZOLE
     Dosage: 20 MG, BID (30 MIN PRIOR TO MEAL)
     Route: 048
  49. FLAXSEED [Concomitant]
     Active Substance: FLAX SEED
     Dosage: 1000 MG, EVERY DAY
     Route: 048
  50. LORTAB [Concomitant]
     Active Substance: ACETAMINOPHEN\HYDROCODONE BITARTRATE
     Dosage: 5 - 500 MG EVERY 4 - 6 HOURS, AS NECESSARY
  51. ALENDRONATE SODIUM. [Concomitant]
     Active Substance: ALENDRONATE SODIUM
     Dosage: 70 MG, UNK
  52. ZANTAC [Concomitant]
     Active Substance: RANITIDINE HYDROCHLORIDE
     Dosage: 300 MG, AT NIGHT
  53. OXYCODONE/APAP [Concomitant]
     Active Substance: ACETAMINOPHEN\OXYCODONE HYDROCHLORIDE
     Dosage: 5-325 MG 1 TO 2 TABS Q4H
     Route: 048
  54. LEUCOVORIN. [Concomitant]
     Active Substance: LEUCOVORIN
     Dosage: 10 MG, QD
     Route: 048
  55. LEVOTHYROXIN [Concomitant]
     Active Substance: LEVOTHYROXINE
     Dosage: 50 MUG, QD
     Route: 048
  56. LORATADINE. [Concomitant]
     Active Substance: LORATADINE
     Dosage: 10 MG, QD
     Route: 048
  57. CYCLOBENZAPRINE HCL [Concomitant]
     Active Substance: CYCLOBENZAPRINE HYDROCHLORIDE
     Dosage: 10 MG, UNK (AT BEDTIME)
     Route: 048
  58. TYLENOL [Concomitant]
     Active Substance: ACETAMINOPHEN
     Dosage: PRN
  59. COENZYME Q10 [Concomitant]
     Active Substance: UBIDECARENONE
     Dosage: 100 MG, QD
  60. ALEVE [Concomitant]
     Active Substance: NAPROXEN SODIUM
     Dosage: UNK
  61. TREXALL [Concomitant]
     Active Substance: METHOTREXATE SODIUM
     Dosage: 10 MG, QWK
     Route: 048
  62. CINNAMON. [Concomitant]
     Active Substance: CINNAMON
     Dosage: UNK
  63. PRILOSEC [Concomitant]
     Active Substance: OMEPRAZOLE MAGNESIUM
     Indication: GASTROOESOPHAGEAL REFLUX DISEASE
     Dosage: 1 DF, BID
     Dates: start: 1996
  64. ARAVA [Concomitant]
     Active Substance: LEFLUNOMIDE
     Dosage: UNK
     Dates: start: 2001, end: 2003
  65. ACETAMINOPHEN. [Concomitant]
     Active Substance: ACETAMINOPHEN
     Dosage: UNK UNK, BID
     Route: 048
  66. ENBREL [Suspect]
     Active Substance: ETANERCEPT
     Dosage: 50 MG, QWK
     Route: 058
  67. CELEBREX [Concomitant]
     Active Substance: CELECOXIB
     Dosage: 200 MG, BID
     Route: 048
  68. HYDROXYCHLOROQUINE SULFATE. [Concomitant]
     Active Substance: HYDROXYCHLOROQUINE SULFATE
     Dosage: 200 MG, TWO TIMES EVERY DAY
     Route: 048
     Dates: start: 20130624
  69. SYNTHROID [Concomitant]
     Active Substance: LEVOTHYROXINE SODIUM
     Dosage: 25 MCG, EVERY DAY
     Route: 048
     Dates: start: 20130629
  70. FLEXERIL [Concomitant]
     Active Substance: CYCLOBENZAPRINE HYDROCHLORIDE
     Indication: MUSCLE RELAXANT THERAPY
     Dosage: 10 MG, QD (EVERY BED TIME)
     Route: 048
     Dates: start: 2006
  71. ALENDRONATE SODIUM. [Concomitant]
     Active Substance: ALENDRONATE SODIUM
     Dosage: 5 MG, QWK
  72. PREDNISONE. [Concomitant]
     Active Substance: PREDNISONE
     Dosage: 5 MG, QD WITH BREAKFAST
     Route: 048
  73. NEXIUM [Concomitant]
     Active Substance: ESOMEPRAZOLE MAGNESIUM
     Dosage: UNK
  74. SUDAFED [Concomitant]
     Active Substance: PSEUDOEPHEDRINE HYDROCHLORIDE
     Dosage: 30 MG, EVERY DAY AS NEEDED
     Route: 048
  75. CLARITIN [Concomitant]
     Active Substance: LORATADINE
     Dosage: 10 MG, QD
  76. INDERAL [Concomitant]
     Active Substance: PROPRANOLOL HYDROCHLORIDE
     Dosage: UNK
  77. COLYTE WITH FLAVOR PACKS [Concomitant]
     Active Substance: POLYETHYLENE GLYCOL 3350\POTASSIUM CHLORIDE\SODIUM BICARBONATE\SODIUM CHLORIDE\SODIUM SULFATE
     Dosage: 240 - 22.72 G, AS DIRECTED
  78. LUTEIN [Concomitant]
     Active Substance: LUTEIN
     Dosage: UNK
  79. TUMS ANTACID [Concomitant]
     Indication: MINERAL SUPPLEMENTATION
     Dosage: 1500 MG, QD
     Route: 048
     Dates: start: 2009
  80. KETOROLAC [Concomitant]
     Active Substance: KETOROLAC\KETOROLAC TROMETHAMINE
     Dosage: 30 MG/ML, UNK
     Route: 042
  81. PSYLLIUM [Concomitant]
     Active Substance: PLANTAGO SEED
     Dosage: 1 DF, QID
     Route: 048
  82. METHOTREXATE. [Suspect]
     Active Substance: METHOTREXATE
     Indication: PRODUCT USED FOR UNKNOWN INDICATION
     Dosage: 2.5 MG, (6 PILLS FOR TOTAL 15 MG EVERY WEEK)
     Route: 048
  83. METHOTREXATE. [Suspect]
     Active Substance: METHOTREXATE
     Dosage: 5 MG, 5 TABLETS WEEKLY
     Route: 048
     Dates: start: 2001
  84. CELEBREX [Concomitant]
     Active Substance: CELECOXIB
     Indication: ARTHRALGIA
     Dosage: 200 MG, QD
     Route: 048
  85. PREDNISONE. [Concomitant]
     Active Substance: PREDNISONE
     Indication: INFLAMMATION
     Dosage: 5 MG, EVERY OTHER DAY
     Route: 048
     Dates: start: 2008
  86. DARVOCET [Concomitant]
     Active Substance: ACETAMINOPHEN\PROPOXYPHENE HYDROCHLORIDE
     Dosage: 1 DF, Q4H
     Route: 048
  87. PLAQUENIL [Concomitant]
     Active Substance: HYDROXYCHLOROQUINE SULFATE
     Dosage: UNK UNK, BID
  88. DAPTOMYCIN. [Concomitant]
     Active Substance: DAPTOMYCIN
     Dosage: 300 MG, UNK
     Route: 042
  89. FISH OIL [Concomitant]
     Active Substance: FISH OIL
     Indication: SUPPLEMENTATION THERAPY
     Dosage: UNK
     Dates: start: 2009
  90. PHENAZOPYRIDINE. [Concomitant]
     Active Substance: PHENAZOPYRIDINE
     Dosage: 200 MG, UNK
  91. ZOLPIDEM TARTRATE. [Concomitant]
     Active Substance: ZOLPIDEM TARTRATE
     Dosage: 10 MG, UNK
  92. AMOXICILLIN. [Concomitant]
     Active Substance: AMOXICILLIN
     Dosage: 500 MG, UNK
  93. TESSALON [Concomitant]
     Active Substance: BENZONATATE
     Dosage: 3X A DAY
  94. ACETAMINOPHEN. [Concomitant]
     Active Substance: ACETAMINOPHEN
     Dosage: 2 DF, Q6H
     Route: 048
  95. HYDROMORFON [Concomitant]
     Dosage: 1 MG/ML, Q2H
     Route: 042
  96. CHLORHEXIDINE [Concomitant]
     Active Substance: CHLORHEXIDINE
     Dosage: UNK

REACTIONS (50)
  - Central venous catheterisation [Unknown]
  - Diverticulum intestinal [Unknown]
  - Incisional hernia [Unknown]
  - Spinal pain [Unknown]
  - Intestinal perforation [Not Recovered/Not Resolved]
  - Ureteric perforation [Unknown]
  - Colitis ulcerative [Unknown]
  - Haemorrhoids [Unknown]
  - Osteoarthritis [Unknown]
  - Haemoglobin decreased [Unknown]
  - Tenderness [Unknown]
  - Rheumatoid arthritis [Unknown]
  - Abdominal mass [Unknown]
  - Muscular weakness [Unknown]
  - Postoperative wound complication [Recovered/Resolved]
  - Haemorrhage subcutaneous [Unknown]
  - Peritonitis [Unknown]
  - Abdominal wall abscess [Recovered/Resolved]
  - Diverticulum [Unknown]
  - Pain [Unknown]
  - Dizziness [Unknown]
  - Pathological fracture [Unknown]
  - Asthenia [Unknown]
  - Hiatus hernia [Not Recovered/Not Resolved]
  - Abscess [Not Recovered/Not Resolved]
  - Platelet count increased [Unknown]
  - Abdominal pain lower [Unknown]
  - Hypothyroidism [Unknown]
  - Impaired healing [Unknown]
  - Diverticulitis [Not Recovered/Not Resolved]
  - Intra-abdominal fluid collection [Unknown]
  - Immunosuppression [Unknown]
  - Serositis [Unknown]
  - Chills [Unknown]
  - Fatigue [Unknown]
  - Pyrexia [Unknown]
  - Haemorrhoids [Unknown]
  - Abdominal hernia [Unknown]
  - Seroma [Unknown]
  - Hydronephrosis [Recovered/Resolved]
  - Pulmonary granuloma [Unknown]
  - Staphylococcal infection [Recovered/Resolved]
  - Colonic abscess [Unknown]
  - Depression [Unknown]
  - Diverticular perforation [Unknown]
  - Suture related complication [Unknown]
  - Device related infection [Unknown]
  - Nausea [Unknown]
  - Abdominal distension [Unknown]
  - Activities of daily living impaired [Unknown]

NARRATIVE: CASE EVENT DATE: 20030328
